FAERS Safety Report 7312153-6 (Version None)
Quarter: 2011Q1

REPORT INFORMATION
  Report Type: 
  Country: None (occurrence: None)
  Receive Date: 20110224
  Receipt Date: 20110217
  Transmission Date: 20110831
  Serious: Yes (Hospitalization)
  Sender: FDA-Public Use
  Company Number: A0747771A

PATIENT
  Age: 37 Year
  Sex: Male
  Weight: 127.3 kg

DRUGS (9)
  1. ZETIA [Concomitant]
  2. ZOCOR [Concomitant]
  3. ATACAND [Concomitant]
  4. GLUCOVANCE [Concomitant]
  5. PREDNISONE [Concomitant]
  6. LIPITOR [Concomitant]
  7. LOTREL [Concomitant]
  8. AVANDIA [Suspect]
     Indication: TYPE 2 DIABETES MELLITUS
     Dosage: 8MG PER DAY
     Route: 048
     Dates: start: 19990101
  9. AVAPRO [Concomitant]

REACTIONS (2)
  - ACUTE CORONARY SYNDROME [None]
  - MYOCARDIAL INFARCTION [None]
